FAERS Safety Report 7010405-0 (Version None)
Quarter: 2010Q3

REPORT INFORMATION
  Report Type: 
  Country: None (occurrence: None)
  Receive Date: 20100923
  Receipt Date: 20100616
  Transmission Date: 20110219
  Serious: No
  Sender: FDA-Public Use
  Company Number: US-BAUSCH-2010BL003266

PATIENT
  Age: 86 Year
  Sex: Female

DRUGS (4)
  1. BESIVANCE [Suspect]
     Indication: ANTIBIOTIC PROPHYLAXIS
     Route: 047
     Dates: start: 20100615, end: 20100615
  2. BESIVANCE [Suspect]
     Indication: OFF LABEL USE
     Route: 047
     Dates: start: 20100615, end: 20100615
  3. LUCENTIS [Concomitant]
     Indication: MACULAR DEGENERATION
     Route: 031
  4. PRESERVISION AREDS SOFT GELS [Concomitant]
     Indication: VITAMIN SUPPLEMENTATION
     Route: 048

REACTIONS (2)
  - OCULAR HYPERAEMIA [None]
  - VITREOUS FLOATERS [None]
